FAERS Safety Report 8742643 (Version 2)
Quarter: 2012Q4

REPORT INFORMATION
  Report Type: Spontaneous
  Country: JP (occurrence: None)
  Receive Date: 20120807
  Receipt Date: 20120817
  Transmission Date: 20130627
  Serious: Yes (Other)
  Sender: FDA-Public Use
  Company Number: DKLU1083631

PATIENT
  Sex: Male

DRUGS (11)
  1. ONFI [Suspect]
     Indication: INFANTILE SPASMS
  2. VALPROIC ACID [Suspect]
     Indication: INFANTILE SPASMS
  3. TOPIRAMATE [Suspect]
     Indication: INFANTILE SPASMS
  4. PHENYTOIN [Suspect]
     Indication: INFANTILE SPASMS
  5. LAMOTRIGINE [Suspect]
     Indication: INFANTILE SPASMS
  6. GABAPENTIN [Suspect]
     Indication: INFANTILE SPASMS
  7. NITRAZEPAM [Concomitant]
  8. ZONISAMIDE [Concomitant]
  9. ACETAZOLAMIDE [Concomitant]
  10. CORTICOTROPIN (CORTICOTROPIN) [Concomitant]
  11. PYRIDOXINE HYDROCHLORIDE [Concomitant]

REACTIONS (3)
  - CONVULSION [None]
  - DRUG INEFFECTIVE [None]
  - DROP ATTACKS [None]
